FAERS Safety Report 7029479-6 (Version None)
Quarter: 2010Q4

REPORT INFORMATION
  Report Type: 
  Country: None (occurrence: None)
  Receive Date: 20101005
  Receipt Date: 20100928
  Transmission Date: 20110411
  Serious: Yes (Death, Other)
  Sender: FDA-Public Use
  Company Number: US-AMGEN-QUU417816

PATIENT
  Sex: Male

DRUGS (6)
  1. ENBREL [Suspect]
     Indication: PSORIASIS
     Route: 058
     Dates: start: 20091104
  2. METOPROLOL [Concomitant]
  3. GLYBURIDE [Concomitant]
  4. BENAZEPRIL HYDROCHLORIDE [Concomitant]
  5. TRAMADOL HCL [Concomitant]
  6. FUROSEMIDE [Concomitant]

REACTIONS (3)
  - DEATH [None]
  - DYSPNOEA [None]
  - UPPER RESPIRATORY TRACT INFECTION [None]
